FAERS Safety Report 8924597 (Version 1)
Quarter: 2012Q4

REPORT INFORMATION
  Report Type: 
  Country: US (occurrence: US)
  Receive Date: 20121126
  Receipt Date: 20121126
  Transmission Date: 20130627
  Serious: Yes (Hospitalization)
  Sender: FDA-Public Use
  Company Number: US-ROCHE-860200939001

PATIENT
  Age: 85 Year
  Sex: Male

DRUGS (2)
  1. ROCEPHIN [Suspect]
     Indication: SEPSIS
     Route: 042
     Dates: start: 19860718, end: 19860725
  2. HALDOL [Concomitant]
     Route: 065

REACTIONS (9)
  - Blood alkaline phosphatase increased [Recovered/Resolved]
  - Jaundice [Recovered/Resolved]
  - Blood bilirubin increased [Recovered/Resolved]
  - Blood bilirubin increased [Unknown]
  - Rash [Recovering/Resolving]
  - Blood test abnormal [Unknown]
  - Eosinophil count increased [Unknown]
  - Haematocrit decreased [Unknown]
  - Red blood cell count decreased [Unknown]
